FAERS Safety Report 9715831 (Version 1)
Quarter: 2013Q4

REPORT INFORMATION
  Report Type: Spontaneous
  Country: US (occurrence: None)
  Receive Date: 20131126
  Receipt Date: 20131126
  Transmission Date: 20140711
  Serious: Yes (Disabling, Other)
  Sender: FDA-Public Use
  Company Number: None

PATIENT
  Age: 39 Year
  Sex: Female
  Weight: 58.97 kg

DRUGS (1)
  1. CRESTOR [Suspect]
     Indication: BLOOD CHOLESTEROL INCREASED
     Dosage: 1 40 MG ONCE DAILY TAKEN BY MOUTH
     Route: 048
     Dates: start: 20090720, end: 20131028

REACTIONS (19)
  - Abdominal pain upper [None]
  - Irritable bowel syndrome [None]
  - Arthralgia [None]
  - Balance disorder [None]
  - Fatigue [None]
  - Pain [None]
  - Fatigue [None]
  - Hypoaesthesia [None]
  - Asthenia [None]
  - Paralysis [None]
  - Gait disturbance [None]
  - Musculoskeletal stiffness [None]
  - Migraine [None]
  - VIIth nerve paralysis [None]
  - Dystonia [None]
  - Confusional state [None]
  - Speech disorder [None]
  - Cognitive disorder [None]
  - Ataxia [None]
